FAERS Safety Report 7485208-3 (Version None)
Quarter: 2011Q2

REPORT INFORMATION
  Report Type: 
  Country: None (occurrence: None)
  Receive Date: 20110517
  Receipt Date: 20101212
  Transmission Date: 20111010
  Serious: Yes (Other)
  Sender: FDA-Public Use
  Company Number: US-BAYER-2010-004280

PATIENT
  Sex: Female

DRUGS (2)
  1. FURADANTIN [Concomitant]
     Indication: URINARY TRACT INFECTION
     Route: 048
  2. ALEVE (CAPLET) [Suspect]

REACTIONS (1)
  - GASTROINTESTINAL HAEMORRHAGE [None]
